FAERS Safety Report 16695325 (Version 1)
Quarter: 2019Q3

REPORT INFORMATION
  Report Type: Spontaneous
  Country: JP (occurrence: JP)
  Receive Date: 20190813
  Receipt Date: 20190813
  Transmission Date: 20191004
  Serious: Yes (Other)
  Sender: FDA-Public Use
  Company Number: JP-JNJFOC-20190629176

PATIENT
  Age: 72 Year

DRUGS (4)
  1. DARZALEX [Suspect]
     Active Substance: DARATUMUMAB
     Route: 041
  2. DEXAMETHASONE. [Suspect]
     Active Substance: DEXAMETHASONE
     Indication: PRODUCT USED FOR UNKNOWN INDICATION
     Route: 065
  3. DARZALEX [Suspect]
     Active Substance: DARATUMUMAB
     Indication: PRODUCT USED FOR UNKNOWN INDICATION
     Dosage: 7 CYCLES
     Route: 041
     Dates: start: 20180529
  4. VELCADE [Suspect]
     Active Substance: BORTEZOMIB
     Indication: PRODUCT USED FOR UNKNOWN INDICATION
     Dosage: BORTEZOMIB:3MG
     Route: 065

REACTIONS (10)
  - Thrombocytopenia [Unknown]
  - Oxygen saturation decreased [Unknown]
  - Lymphopenia [Unknown]
  - Anaemia [Unknown]
  - Chills [Unknown]
  - Leukopenia [Unknown]
  - Neutropenia [Unknown]
  - Pyrexia [Unknown]
  - Infusion related reaction [Unknown]
  - Pneumonia [Unknown]
